FAERS Safety Report 7452071-6 (Version None)
Quarter: 2011Q2

REPORT INFORMATION
  Report Type: 
  Country: None (occurrence: None)
  Receive Date: 20110502
  Receipt Date: 20110421
  Transmission Date: 20111010
  Serious: Yes (Hospitalization)
  Sender: FDA-Public Use
  Company Number: FR-BRISTOL-MYERS SQUIBB COMPANY-15692064

PATIENT
  Age: 84 Year
  Sex: Female

DRUGS (14)
  1. COAPROVEL TABS 300MG/ 25MG [Suspect]
     Dosage: 1 DF=300MG/25MG
     Dates: end: 20110223
  2. OFLOCET [Concomitant]
     Dates: start: 20110221, end: 20110222
  3. LIPANTHYL [Suspect]
     Dates: end: 20110223
  4. ZECLAR [Suspect]
     Dates: start: 20110223, end: 20110301
  5. DIFFU-K [Concomitant]
     Dates: start: 20110221, end: 20110222
  6. LEVOTHYROX [Concomitant]
  7. EUPANTOL [Suspect]
     Dates: start: 20110217, end: 20110228
  8. KARDEGIC [Suspect]
  9. FORLAX [Concomitant]
     Dates: start: 20110223, end: 20110228
  10. INNOHEP [Concomitant]
     Route: 058
     Dates: start: 20110221, end: 20110223
  11. AMOXICILLIN [Suspect]
     Dates: start: 20110222, end: 20110303
  12. XANAX [Concomitant]
     Dates: end: 20110223
  13. ATARAX [Concomitant]
     Dates: end: 20110222
  14. SEROPRAM [Concomitant]
     Dates: start: 20110223

REACTIONS (5)
  - GASTROINTESTINAL HAEMORRHAGE [None]
  - RENAL FAILURE ACUTE [None]
  - GASTRITIS EROSIVE [None]
  - SHOCK HAEMORRHAGIC [None]
  - ANAEMIA [None]
